FAERS Safety Report 5365308-4 (Version None)
Quarter: 2007Q2

REPORT INFORMATION
  Report Type: 
  Country: None (occurrence: None)
  Receive Date: 20070621
  Receipt Date: 20070621
  Transmission Date: 20071010
  Serious: No
  Sender: FDA-Public Use
  Company Number: EC-BAXTER-2007BH004541

PATIENT
  Age: 20 Year
  Sex: Male

DRUGS (2)
  1. BUMINATE 25% [Suspect]
     Indication: HYPOVOLAEMIA
     Dosage: DOSE UNIT:UNKNOWN
     Route: 042
     Dates: start: 20070416
  2. BUMINATE 25% [Suspect]
     Dosage: DOSE UNIT:UNKNOWN
     Route: 042
     Dates: start: 20070416

REACTIONS (1)
  - PARALYSIS [None]
